FAERS Safety Report 25617982 (Version 1)
Quarter: 2025Q3

REPORT INFORMATION
  Report Type: Spontaneous
  Country: CA (occurrence: CA)
  Receive Date: 20250729
  Receipt Date: 20250729
  Transmission Date: 20251020
  Serious: Yes (Life-Threatening)
  Sender: FRESENIUS KABI
  Company Number: CA-FreseniusKabi-FK202510230

PATIENT
  Age: 76 Year
  Sex: Female

DRUGS (2)
  1. MORPHINE [Suspect]
     Active Substance: MORPHINE
     Indication: Product used for unknown indication
  2. DIMENHYDRINATE [Concomitant]
     Active Substance: DIMENHYDRINATE
     Indication: Product used for unknown indication

REACTIONS (4)
  - Blood pressure increased [Recovered/Resolved]
  - Hypopnoea [Recovered/Resolved]
  - Syncope [Recovered/Resolved]
  - Unresponsive to stimuli [Recovered/Resolved]
